FAERS Safety Report 4796638-2 (Version None)
Quarter: 2005Q4

REPORT INFORMATION
  Report Type: 
  Country: None (occurrence: None)
  Receive Date: 20051013
  Receipt Date: 20051003
  Transmission Date: 20060501
  Serious: Yes (Life-Threatening, Hospitalization, Disabling, Other)
  Sender: FDA-Public Use
  Company Number: US-JNJFOC-20051000524

PATIENT
  Sex: Female
  Weight: 62.14 kg

DRUGS (8)
  1. INFLIXIMAB [Suspect]
     Route: 042
  2. INFLIXIMAB [Suspect]
     Route: 042
  3. INFLIXIMAB [Suspect]
     Route: 042
  4. INFLIXIMAB [Suspect]
     Route: 042
  5. INFLIXIMAB [Suspect]
     Route: 042
  6. INFLIXIMAB [Suspect]
     Route: 042
  7. INFLIXIMAB [Suspect]
     Route: 042
  8. INFLIXIMAB [Suspect]
     Indication: CROHN'S DISEASE
     Dosage: 6 INFUSIONS ON UNSPECIFIED DATES
     Route: 042

REACTIONS (4)
  - CHOLECYSTITIS ACUTE [None]
  - CHOLECYSTITIS INFECTIVE [None]
  - INFUSION RELATED REACTION [None]
  - SEPSIS [None]
